FAERS Safety Report 11802544 (Version 1)
Quarter: 2015Q4

REPORT INFORMATION
  Report Type: Spontaneous
  Country: US (occurrence: US)
  Receive Date: 20151204
  Receipt Date: 20151204
  Transmission Date: 20160305
  Serious: Yes (Other)
  Sender: FDA-Public Use
  Company Number: US-PFIZER INC-2015419067

PATIENT
  Age: 70 Year
  Sex: Female
  Weight: 74 kg

DRUGS (1)
  1. EFFEXOR XR [Suspect]
     Active Substance: VENLAFAXINE HYDROCHLORIDE
     Indication: ANXIETY
     Dosage: 150 MG, 1X/DAY
     Route: 048
     Dates: start: 2006

REACTIONS (2)
  - Breast cancer [Unknown]
  - Breast cancer [Unknown]

NARRATIVE: CASE EVENT DATE: 2007
